FAERS Safety Report 8116833-4 (Version None)
Quarter: 2012Q1

REPORT INFORMATION
  Report Type: 
  Country: None (occurrence: None)
  Receive Date: 20120206
  Receipt Date: 20120201
  Transmission Date: 20120608
  Serious: Yes (Hospitalization)
  Sender: FDA-Public Use
  Company Number: PHHY2012ZA008528

PATIENT
  Sex: Female

DRUGS (3)
  1. ZOLEDRONOC ACID [Suspect]
     Dosage: 5 MG, YEARLY
     Route: 042
     Dates: start: 20110101
  2. ZOLEDRONOC ACID [Suspect]
     Dosage: 5 MG, YEARLY
     Route: 042
     Dates: start: 20090701
  3. ZOLEDRONOC ACID [Suspect]
     Dosage: 5 MG, YEARLY
     Route: 042
     Dates: start: 20100101

REACTIONS (3)
  - ATRIOVENTRICULAR BLOCK [None]
  - CARDIAC DISORDER [None]
  - CIRCULATORY COLLAPSE [None]
